FAERS Safety Report 8290039-0 (Version None)
Quarter: 2012Q2

REPORT INFORMATION
  Report Type: 
  Country: None (occurrence: None)
  Receive Date: 20120417
  Receipt Date: 20120412
  Transmission Date: 20120825
  Serious: Yes (Other)
  Sender: FDA-Public Use
  Company Number: US-ABBOTT-12P-163-0925395-00

PATIENT
  Sex: Female
  Weight: 88.53 kg

DRUGS (9)
  1. SYNTHROID [Suspect]
     Dates: start: 20120101
  2. SYNTHROID [Suspect]
  3. SYNTHROID [Suspect]
  4. SYNTHROID [Suspect]
     Indication: PRODUCT USED FOR UNKNOWN INDICATION
     Dosage: 2 DOSES
     Dates: start: 20111211
  5. SYNTHROID [Suspect]
  6. SYNTHROID [Suspect]
     Dates: start: 20120101, end: 20120101
  7. FUROSEMIDE [Concomitant]
     Indication: JOINT SWELLING
  8. VITAMIN B-12 [Concomitant]
     Indication: PRODUCT USED FOR UNKNOWN INDICATION
  9. SYNTHROID [Suspect]
     Indication: PRODUCT USED FOR UNKNOWN INDICATION
     Dates: start: 19870101, end: 20111211

REACTIONS (4)
  - URTICARIA [None]
  - SWELLING FACE [None]
  - APPENDICITIS [None]
  - REACTION TO AZO-DYES [None]
